FAERS Safety Report 6738535-9 (Version None)
Quarter: 2010Q2

REPORT INFORMATION
  Report Type: 
  Country: None (occurrence: None)
  Receive Date: 20100524
  Receipt Date: 20100513
  Transmission Date: 20101027
  Serious: Yes (Other)
  Sender: FDA-Public Use
  Company Number: US-JNJFOC-20100503162

PATIENT
  Age: 75 Year
  Sex: Female

DRUGS (1)
  1. STELARA [Suspect]
     Indication: PSORIASIS
     Route: 058

REACTIONS (5)
  - ASTHENIA [None]
  - DECREASED APPETITE [None]
  - FEELING ABNORMAL [None]
  - HEPATITIS C RNA INCREASED [None]
  - WEIGHT DECREASED [None]
